FAERS Safety Report 6680636-8 (Version None)
Quarter: 2010Q2

REPORT INFORMATION
  Report Type: 
  Country: None (occurrence: None)
  Receive Date: 20100414
  Receipt Date: 20100405
  Transmission Date: 20101027
  Serious: Yes (Hospitalization, Other)
  Sender: FDA-Public Use
  Company Number: BR-PFIZER INC-2009261552

PATIENT
  Age: 54 Year
  Sex: Male
  Weight: 98 kg

DRUGS (11)
  1. DETRUSITOL LA [Suspect]
     Indication: URINARY INCONTINENCE
     Dosage: 4 MG, 1X/DAY
     Route: 048
     Dates: start: 20070101
  2. DETRUSITOL LA [Suspect]
     Indication: HYPERTONIC BLADDER
  3. OXYBUTYNIN [Suspect]
     Indication: POLLAKIURIA
     Dosage: UNK
  4. CAPTOPRIL [Concomitant]
     Indication: BLOOD PRESSURE INCREASED
     Dosage: 25 MG, UNK
     Dates: start: 20050101
  5. PROPRANOLOL [Concomitant]
     Indication: BLOOD PRESSURE INCREASED
     Dosage: 40 MG, UNK
     Dates: start: 20050101
  6. CLOXAZOLAM [Concomitant]
     Dosage: UNK
  7. METFORMIN [Concomitant]
     Indication: DIABETES MELLITUS
     Dosage: 850 MG, UNK
  8. AMITRIPTYLINE [Concomitant]
     Indication: SLEEP DISORDER
     Dosage: 75 MG, UNK
     Dates: start: 20050101
  9. ALPRAZOLAM [Concomitant]
     Indication: SLEEP DISORDER
     Dosage: 2 MG, UNK
     Dates: start: 20050101
  10. FENOBARBITAL [Concomitant]
     Indication: SLEEP DISORDER
     Dosage: 100 MG, UNK
     Dates: start: 20050101
  11. CLONAZEPAM [Concomitant]
     Indication: SLEEP DISORDER
     Dosage: 2 MG, UNK
     Dates: start: 20050101

REACTIONS (8)
  - BLADDER DISCOMFORT [None]
  - BLOOD PRESSURE INCREASED [None]
  - CHOLECYSTECTOMY [None]
  - DYSURIA [None]
  - NOCTURIA [None]
  - URINARY INCONTINENCE [None]
  - URINARY RETENTION [None]
  - WEIGHT INCREASED [None]
